FAERS Safety Report 16819322 (Version 1)
Quarter: 2019Q3

REPORT INFORMATION
  Report Type: Spontaneous
  Country: FR (occurrence: FR)
  Receive Date: 20190917
  Receipt Date: 20190917
  Transmission Date: 20191005
  Serious: Yes (Other)
  Sender: FDA-Public Use
  Company Number: PHHY2019FR214054

PATIENT
  Age: 15 Year
  Sex: Female
  Weight: 71 kg

DRUGS (1)
  1. RIAMET [Suspect]
     Active Substance: ARTEMETHER\LUMEFANTRINE
     Indication: MALARIA
     Dosage: 4 DF, BID
     Route: 048
     Dates: start: 20190909, end: 20190910

REACTIONS (4)
  - Cerebral malaria [Unknown]
  - Depressed level of consciousness [Unknown]
  - Nervous system disorder [Unknown]
  - Vomiting [Unknown]

NARRATIVE: CASE EVENT DATE: 201909
